FAERS Safety Report 8954288 (Version 3)
Quarter: 2013Q1

REPORT INFORMATION
  Report Type: Report from Study
  Country: US (occurrence: US)
  Receive Date: 20121207
  Receipt Date: 20130211
  Transmission Date: 20140127
  Serious: No
  Sender: FDA-Public Use
  Company Number: US-VERTEX PHARMACEUTICALS INC.-2012-025581

PATIENT
  Age: 55 Year
  Sex: Male
  Weight: 54 kg

DRUGS (5)
  1. VX-950 (TELAPREVIR) [Suspect]
     Indication: HEPATITIS C
     Dosage: 750 MG, TID
     Route: 048
  2. PEGASYS [Suspect]
     Indication: HEPATITIS C
     Dosage: 180 ?G, QW
     Route: 058
  3. RIBAPAK [Suspect]
     Indication: HEPATITIS C
     Dosage: 600 MG PM 400 MG AM, QD
     Route: 048
  4. ENSURE [Concomitant]
  5. EPOGEN [Concomitant]
     Dosage: 4000/ ML

REACTIONS (9)
  - Dyspnoea [Unknown]
  - Dysphonia [Unknown]
  - Headache [Recovered/Resolved]
  - Cough [Unknown]
  - Decreased appetite [Unknown]
  - Fatigue [Unknown]
  - Rash papular [Unknown]
  - Pruritus [Unknown]
  - Nausea [Unknown]
